FAERS Safety Report 24194110 (Version 1)
Quarter: 2024Q3

REPORT INFORMATION
  Report Type: Spontaneous
  Country: US (occurrence: US)
  Receive Date: 20240809
  Receipt Date: 20240809
  Transmission Date: 20241016
  Serious: Yes (Hospitalization)
  Sender: MYLAN
  Company Number: US-MYLANLABS-2024M1073757

PATIENT
  Age: 76 Year
  Sex: Female

DRUGS (6)
  1. MYCOPHENOLATE MOFETIL [Suspect]
     Active Substance: MYCOPHENOLATE MOFETIL
     Indication: Immunosuppressant drug therapy
     Dosage: UNK
     Route: 065
  2. SUCRALFATE [Suspect]
     Active Substance: SUCRALFATE
     Indication: Oesophagitis ulcerative
     Dosage: UNK, BID
     Route: 065
  3. SUCRALFATE [Suspect]
     Active Substance: SUCRALFATE
     Indication: Diverticulum oesophageal
  4. OMEPRAZOLE [Suspect]
     Active Substance: OMEPRAZOLE
     Indication: Oesophagitis ulcerative
     Dosage: UNK UNK, BID
     Route: 065
  5. OMEPRAZOLE [Suspect]
     Active Substance: OMEPRAZOLE
     Indication: Diverticulum oesophageal
  6. SIROLIMUS [Concomitant]
     Active Substance: SIROLIMUS
     Indication: Immunosuppressant drug therapy
     Dosage: UNK
     Route: 065

REACTIONS (3)
  - Oesophagitis ulcerative [Recovered/Resolved]
  - Diverticulum oesophageal [Not Recovered/Not Resolved]
  - Drug ineffective [Unknown]
